FAERS Safety Report 7387171-2 (Version None)
Quarter: 2011Q1

REPORT INFORMATION
  Report Type: 
  Country: None (occurrence: None)
  Receive Date: 20110331
  Receipt Date: 20110324
  Transmission Date: 20110831
  Serious: Yes (Hospitalization)
  Sender: FDA-Public Use
  Company Number: B0699893A

PATIENT
  Sex: Male

DRUGS (4)
  1. PAXIL [Suspect]
     Indication: OBSESSIVE-COMPULSIVE DISORDER
     Dosage: 10MG PER DAY
     Route: 048
     Dates: start: 20110114
  2. PAXIL [Suspect]
     Dosage: 40MG PER DAY
     Dates: start: 20110305
  3. LENDORMIN [Concomitant]
     Indication: INSOMNIA
     Dosage: .25MG PER DAY
     Route: 048
     Dates: start: 20110114
  4. FERROUS CITRATE [Concomitant]
     Dosage: 100MG PER DAY
     Route: 048
     Dates: start: 20110210

REACTIONS (4)
  - HAEMOGLOBIN DECREASED [None]
  - ULCER HAEMORRHAGE [None]
  - NAUSEA [None]
  - HAEMATEMESIS [None]
